FAERS Safety Report 4945443-2 (Version None)
Quarter: 2006Q1

REPORT INFORMATION
  Report Type: 
  Country: None (occurrence: None)
  Receive Date: 20060316
  Receipt Date: 20060314
  Transmission Date: 20060701
  Serious: Yes (Other)
  Sender: FDA-Public Use
  Company Number: US-GLAXOSMITHKLINE-A0597534A

PATIENT
  Age: 50 Year
  Sex: Female

DRUGS (5)
  1. MALARONE [Suspect]
     Indication: MALARIA PROPHYLAXIS
     Dosage: 1TAB PER DAY
     Route: 048
     Dates: start: 20060216, end: 20060228
  2. THYROID TAB [Concomitant]
  3. AMBIEN [Concomitant]
  4. LYRICA [Concomitant]
     Dates: end: 20060301
  5. BOTOX INJECTION [Concomitant]

REACTIONS (22)
  - ABDOMINAL PAIN [None]
  - ASTHENIA [None]
  - DELUSION [None]
  - DIARRHOEA [None]
  - DIZZINESS [None]
  - DYSARTHRIA [None]
  - DYSKINESIA [None]
  - EYE SWELLING [None]
  - FATIGUE [None]
  - FEELING ABNORMAL [None]
  - HEADACHE [None]
  - HYPERSOMNIA [None]
  - OEDEMA PERIPHERAL [None]
  - POLLAKIURIA [None]
  - SENSORY DISTURBANCE [None]
  - SPEECH DISORDER [None]
  - SYNCOPE [None]
  - THINKING ABNORMAL [None]
  - TREMOR [None]
  - VISION BLURRED [None]
  - VISUAL DISTURBANCE [None]
  - VOMITING [None]
